FAERS Safety Report 4449029-8 (Version None)
Quarter: 2004Q3

REPORT INFORMATION
  Report Type: 
  Country: None (occurrence: None)
  Receive Date: 20040910
  Receipt Date: 20040901
  Transmission Date: 20050211
  Serious: Yes (Hospitalization)
  Sender: FDA-Public Use
  Company Number: AU-JNJFOC-20040901519

PATIENT
  Age: 17 Year
  Sex: Male
  Weight: 47 kg

DRUGS (2)
  1. IBUPROFEN [Suspect]
     Indication: ANALGESIC EFFECT
     Dosage: 500 MG, 1 IN 1 TOTAL, ORAL
     Route: 048
  2. CORTICOSTEROIDS (CORTICOSTEROIDS) [Concomitant]

REACTIONS (3)
  - CHEST DISCOMFORT [None]
  - EMOTIONAL DISTRESS [None]
  - RESPIRATORY DISORDER [None]
